FAERS Safety Report 6542803-3 (Version None)
Quarter: 2010Q1

REPORT INFORMATION
  Report Type: 
  Country: None (occurrence: None)
  Receive Date: 20100114
  Receipt Date: 20100104
  Transmission Date: 20100710
  Serious: Yes (Hospitalization)
  Sender: FDA-Public Use
  Company Number: 230100M08CAN

PATIENT
  Age: 55 Year
  Sex: Male

DRUGS (5)
  1. REBIF [Suspect]
     Indication: SECONDARY PROGRESSIVE MULTIPLE SCLEROSIS
     Dosage: 44 MCG, 3 IN 1 WEEKS, SUBCUTANEOUS
     Route: 058
     Dates: start: 20010916
  2. COUMADIN [Concomitant]
  3. CALCIUM (CALCIUM-S-ANDOZ /00009901/) [Concomitant]
  4. PREDNISONE [Concomitant]
  5. HYDROMORPHINE (HYDROMORPHONE) (HYDROMORPHONE) [Concomitant]

REACTIONS (2)
  - SKIN GRAFT [None]
  - SKIN ULCER [None]
